FAERS Safety Report 6252838 (Version 2)
Quarter: 2013Q1

REPORT INFORMATION
  Report Type: Spontaneous
  Country: CA (occurrence: None)
  Receive Date: 20070215
  Receipt Date: 20130124
  Transmission Date: 20140127
  Serious: Yes (Other)
  Sender: FDA-Public Use
  Company Number: 2007US-05619

PATIENT
  Age: 27 Year
  Sex: Female

DRUGS (1)
  1. NITROFURANTOIN [Suspect]
     Indication: URINARY TRACT INFECTION
     Dosage: 10 MB, BID

REACTIONS (16)
  - Pneumonitis [None]
  - Haemoptysis [None]
  - Blood pressure increased [None]
  - Hyperdynamic left ventricle [None]
  - Oedema peripheral [None]
  - Microcytic anaemia [None]
  - Blood lactate dehydrogenase increased [None]
  - Pleural effusion [None]
  - Chest pain [None]
  - Acidosis [None]
  - Leukocytosis [None]
  - Neutrophilia [None]
  - Cardiomegaly [None]
  - Exposure during pregnancy [None]
  - Respiratory failure [None]
  - Oedema [None]
